FAERS Safety Report 5690723-9 (Version None)
Quarter: 2008Q2

REPORT INFORMATION
  Report Type: 
  Country: None (occurrence: None)
  Receive Date: 20080401
  Receipt Date: 20080321
  Transmission Date: 20081010
  Serious: Yes (Hospitalization)
  Sender: FDA-Public Use
  Company Number: JP-ELI_LILLY_AND_COMPANY-JP200802005737

PATIENT
  Sex: Female
  Weight: 44 kg

DRUGS (4)
  1. RALOXIFENE HYDROCHLORIDE [Suspect]
     Indication: OSTEOPOROSIS POSTMENOPAUSAL
     Dosage: 60 MG, DAILY (1/D)
     Route: 048
     Dates: start: 20041216, end: 20060114
  2. RHEUMATREX [Concomitant]
     Indication: MUSCULOSKELETAL PAIN
     Dosage: 8 MG, WEEKLY (1/W)
     Route: 048
     Dates: start: 20040901
  3. FAMOTIDINE [Concomitant]
     Indication: GASTRITIS
     Dosage: 10 MG, DAILY (1/D)
     Route: 048
  4. GASMOTIN [Concomitant]
     Indication: GASTRITIS
     Dosage: 15 MG, DAILY (1/D)
     Route: 048

REACTIONS (1)
  - PANCREATITIS ACUTE [None]
